FAERS Safety Report 5621818-3 (Version None)
Quarter: 2008Q1

REPORT INFORMATION
  Report Type: 
  Country: None (occurrence: None)
  Receive Date: 20080211
  Receipt Date: 20080131
  Transmission Date: 20080703
  Serious: Yes (Hospitalization)
  Sender: FDA-Public Use
  Company Number: PHFR2007GB03677

PATIENT
  Age: 43 Year
  Sex: Female

DRUGS (5)
  1. GLEEVEC [Suspect]
     Dosage: UNK, UNK
     Route: 065
     Dates: start: 20030201
  2. SUNITINIB MALATE [Concomitant]
     Dates: start: 20070101
  3. FUROSEMIDE [Concomitant]
     Indication: FLUID RETENTION
     Dosage: 40MG/DAY
     Route: 048
     Dates: start: 20070919, end: 20071129
  4. OXYNORM [Concomitant]
     Dosage: 5 MG, PRN
     Route: 048
     Dates: start: 20071129
  5. SPIRONOLACTONE [Concomitant]
     Indication: FLUID RETENTION
     Dosage: 50MG/DAY
     Route: 048
     Dates: start: 20071128

REACTIONS (7)
  - ASCITES [None]
  - BLOOD POTASSIUM DECREASED [None]
  - DIARRHOEA [None]
  - HAEMATEMESIS [None]
  - NEUTROPENIA [None]
  - OEDEMA [None]
  - VOMITING [None]
